FAERS Safety Report 9346775 (Version 2)
Quarter: 2013Q3

REPORT INFORMATION
  Report Type: Spontaneous
  Country: FR (occurrence: FR)
  Receive Date: 20130613
  Receipt Date: 20130827
  Transmission Date: 20140515
  Serious: Yes (Death, Other)
  Sender: FDA-Public Use
  Company Number: FR-TEVA-411574ISR

PATIENT
  Age: 84 Year
  Sex: Female

DRUGS (1)
  1. FUROSEMIDE TEVA 40 MG, COMPRESSES SECABLE [Suspect]
     Route: 048

REACTIONS (5)
  - Death [Fatal]
  - Cardiac failure [Unknown]
  - Dehydration [Unknown]
  - Somnolence [Unknown]
  - Local swelling [Unknown]
